FAERS Safety Report 6227625-5 (Version None)
Quarter: 2009Q2

REPORT INFORMATION
  Report Type: 
  Country: None (occurrence: None)
  Receive Date: 20090612
  Receipt Date: 20090602
  Transmission Date: 20091009
  Serious: Yes (Other)
  Sender: FDA-Public Use
  Company Number: PHHY2009IL21705

PATIENT
  Age: 61 Year
  Sex: Male

DRUGS (1)
  1. TASIGNA [Suspect]
     Indication: CHRONIC MYELOID LEUKAEMIA
     Dosage: 600 MG DAILY
     Route: 048

REACTIONS (4)
  - ARRHYTHMIA SUPRAVENTRICULAR [None]
  - CARDIAC DISORDER [None]
  - DYSPNOEA [None]
  - HYPERTENSION [None]
